FAERS Safety Report 21761462 (Version 2)
Quarter: 2023Q1

REPORT INFORMATION
  Report Type: Spontaneous
  Country: CA (occurrence: CA)
  Receive Date: 20221221
  Receipt Date: 20230216
  Transmission Date: 20230417
  Serious: Yes (Other)
  Sender: FDA-Public Use
  Company Number: CA-PFIZER INC-202201380904

PATIENT
  Age: 57 Year
  Sex: Male

DRUGS (3)
  1. ABRILADA [Suspect]
     Active Substance: ADALIMUMAB-AFZB
     Indication: Psoriatic arthropathy
     Dosage: 40 MG, EVERY 2 WEEKS,  PREFILLED SYRINGE
     Route: 058
     Dates: start: 20220930
  2. METHOTREXATE [Concomitant]
     Active Substance: METHOTREXATE
     Indication: Psoriatic arthropathy
     Dosage: 25 MG, WEEKLY
     Route: 058
     Dates: start: 20210727
  3. SULFASALAZINE [Concomitant]
     Active Substance: SULFASALAZINE
     Indication: Psoriatic arthropathy
     Dosage: 1500 MG, 2X/DAY
     Route: 048
     Dates: start: 20220602, end: 20221104

REACTIONS (4)
  - Loss of personal independence in daily activities [Unknown]
  - Synovitis [Unknown]
  - Inflammation [Unknown]
  - Bone erosion [Unknown]

NARRATIVE: CASE EVENT DATE: 20220101
